FAERS Safety Report 6456236-1 (Version None)
Quarter: 2009Q4

REPORT INFORMATION
  Report Type: 
  Country: None (occurrence: None)
  Receive Date: 20091124
  Receipt Date: 20091124
  Transmission Date: 20100525
  Serious: No
  Sender: FDA-Public Use
  Company Number: None

PATIENT
  Age: 59 Year
  Sex: Female
  Weight: 75.2971 kg

DRUGS (1)
  1. LIOTHYRONINE SODIUM [Suspect]
     Indication: THYROID CANCER
     Dosage: 5 MCG
     Dates: start: 20090701

REACTIONS (4)
  - BALANCE DISORDER [None]
  - DISTURBANCE IN ATTENTION [None]
  - FATIGUE [None]
  - MYALGIA [None]
